FAERS Safety Report 23055611 (Version 2)
Quarter: 2023Q4

REPORT INFORMATION
  Report Type: Spontaneous
  Country: JP (occurrence: JP)
  Receive Date: 20231011
  Receipt Date: 20231031
  Transmission Date: 20240110
  Serious: Yes (Death)
  Sender: FDA-Public Use
  Company Number: JP-ELI_LILLY_AND_COMPANY-JP202310005655

PATIENT
  Age: 54 Year
  Sex: Male
  Weight: 70 kg

DRUGS (13)
  1. DULOXETINE HYDROCHLORIDE [Suspect]
     Active Substance: DULOXETINE HYDROCHLORIDE
     Indication: Product used for unknown indication
     Dosage: 40 MG, DAILY
     Route: 048
     Dates: start: 202202, end: 20230329
  2. METHADONE HYDROCHLORIDE [Suspect]
     Active Substance: METHADONE HYDROCHLORIDE
     Indication: Epithelioid sarcoma
     Dosage: 5 MG, TID
     Route: 048
     Dates: start: 20230306, end: 20230312
  3. METHADONE HYDROCHLORIDE [Suspect]
     Active Substance: METHADONE HYDROCHLORIDE
     Indication: Metastases to muscle
     Dosage: 15 MG, TID
     Route: 048
     Dates: start: 20230313, end: 20230319
  4. METHADONE HYDROCHLORIDE [Suspect]
     Active Substance: METHADONE HYDROCHLORIDE
     Dosage: 20 MG, TID
     Route: 048
     Dates: start: 20230320, end: 20230320
  5. METHADONE HYDROCHLORIDE [Suspect]
     Active Substance: METHADONE HYDROCHLORIDE
     Dosage: 10 MG, TID
     Route: 048
     Dates: start: 20230321, end: 20230330
  6. LOXOPROFEN SODIUM DIHYDRATE [Concomitant]
     Active Substance: LOXOPROFEN SODIUM DIHYDRATE
  7. OXYCODONE HYDROCHLORIDE [Concomitant]
     Active Substance: OXYCODONE HYDROCHLORIDE
     Indication: Epithelioid sarcoma
  8. OXYCODONE HYDROCHLORIDE [Concomitant]
     Active Substance: OXYCODONE HYDROCHLORIDE
     Indication: Metastases to muscle
  9. LYRICA [Concomitant]
     Active Substance: PREGABALIN
     Indication: Epithelioid sarcoma
  10. LYRICA [Concomitant]
     Active Substance: PREGABALIN
     Indication: Metastases to muscle
  11. RIVOTRIL [Concomitant]
     Active Substance: CLONAZEPAM
  12. HYDROMORPHONE HYDROCHLORIDE [Concomitant]
     Active Substance: HYDROMORPHONE HYDROCHLORIDE
  13. HYDROMORPHONE HYDROCHLORIDE [Concomitant]
     Active Substance: HYDROMORPHONE HYDROCHLORIDE

REACTIONS (5)
  - Gastrointestinal haemorrhage [Fatal]
  - Epithelioid sarcoma [Fatal]
  - Supraventricular extrasystoles [Recovered/Resolved]
  - Electrocardiogram QT prolonged [Not Recovered/Not Resolved]
  - Somnolence [Not Recovered/Not Resolved]

NARRATIVE: CASE EVENT DATE: 20230306
